FAERS Safety Report 7485112-0 (Version None)
Quarter: 2011Q2

REPORT INFORMATION
  Report Type: 
  Country: None (occurrence: None)
  Receive Date: 20110517
  Receipt Date: 20101118
  Transmission Date: 20111010
  Serious: No
  Sender: FDA-Public Use
  Company Number: US-BAYER-201018818BCC

PATIENT
  Age: 46 Year
  Sex: Male
  Weight: 102.27 kg

DRUGS (2)
  1. NAPROXEN (ALEVE) [Suspect]
     Dosage: CONSUMER TOOK 2 ALEVE TABLETS FOR THE FIRST DOSE AND 1 TABLET EVERY 8 TO 12 HOURS
     Route: 048
  2. NAPROXEN (ALEVE) [Suspect]
     Indication: BACK PAIN
     Dosage: CONSUMER TOOK 2 ALEVE TABLETS FOR THE FIRST DOSE AND 1 TABLET EVERY 8 TO 12 HOURS
     Route: 048

REACTIONS (1)
  - BACK PAIN [None]
